FAERS Safety Report 4669574-X (Version None)
Quarter: 2005Q2

REPORT INFORMATION
  Report Type: 
  Country: None (occurrence: None)
  Receive Date: 20050523
  Receipt Date: 20050517
  Transmission Date: 20051028
  Serious: Yes (Other)
  Sender: FDA-Public Use
  Company Number: PHBS2005DE07045

PATIENT
  Age: 9 Year
  Sex: Female

DRUGS (4)
  1. CYCLOSPORINE [Suspect]
     Indication: RENAL AND LIVER TRANSPLANT
  2. BASILIXIMAB [Suspect]
     Indication: RENAL AND LIVER TRANSPLANT
     Dosage: 10 MG, ONCE/SINGLE
     Route: 065
  3. BASILIXIMAB [Suspect]
     Dosage: 10 MG, ONCE/SINGLE
     Route: 065
  4. PREDNISONE [Concomitant]
     Dosage: TAPER TO 4 MG/M2/D

REACTIONS (11)
  - ANURIA [None]
  - ATELECTASIS [None]
  - HEPATIC FUNCTION ABNORMAL [None]
  - HYPOTENSION [None]
  - INTESTINAL HAEMORRHAGE [None]
  - NEPHROPATHY TOXIC [None]
  - PLEURAL EFFUSION [None]
  - RENAL FAILURE [None]
  - RENAL TUBULAR DISORDER [None]
  - SEPSIS [None]
  - VENA CAVA THROMBOSIS [None]
